FAERS Safety Report 8344622 (Version 2)
Quarter: 2013Q1

REPORT INFORMATION
  Report Type: Spontaneous
  Country: US (occurrence: US)
  Receive Date: 20120120
  Receipt Date: 20130207
  Transmission Date: 20140127
  Serious: No
  Sender: FDA-Public Use
  Company Number: US-BIOGENIDEC-2012BI001173

PATIENT
  Age: 34 Year
  Sex: Female

DRUGS (1)
  1. TYSABRI [Suspect]
     Indication: MULTIPLE SCLEROSIS
     Route: 042
     Dates: start: 20081204

REACTIONS (4)
  - Local swelling [Recovered/Resolved]
  - Hypoaesthesia [Recovered/Resolved]
  - Inner ear disorder [Recovered/Resolved]
  - Multiple sclerosis relapse [Not Recovered/Not Resolved]
